FAERS Safety Report 6957397-8 (Version None)
Quarter: 2010Q3

REPORT INFORMATION
  Report Type: 
  Country: None (occurrence: None)
  Receive Date: 20100826
  Receipt Date: 20100818
  Transmission Date: 20110219
  Serious: Yes (Death)
  Sender: FDA-Public Use
  Company Number: 2010080033

PATIENT
  Age: 56 Year
  Sex: Male

DRUGS (3)
  1. ONSOLIS [Suspect]
     Indication: CANCER PAIN
     Dosage: TITRATE UP 4 FILMS/DOSE (UP TO  4 TIMES DAILY), BU
     Route: 002
     Dates: start: 20100731
  2. FENTANYL-100 [Concomitant]
  3. COMPAZINE [Concomitant]

REACTIONS (2)
  - HEAD AND NECK CANCER [None]
  - MALIGNANT NEOPLASM PROGRESSION [None]
